FAERS Safety Report 4286386-X (Version None)
Quarter: 2004Q1

REPORT INFORMATION
  Report Type: 
  Country: None (occurrence: None)
  Receive Date: 20040126
  Receipt Date: 20031117
  Transmission Date: 20041129
  Serious: Yes (Hospitalization)
  Sender: FDA-Public Use
  Company Number: USA031152792

PATIENT
  Age: 90 Year
  Sex: Female

DRUGS (1)
  1. FORTEO [Suspect]
     Indication: OSTEOPOROSIS
     Dates: start: 20031001

REACTIONS (5)
  - ARTHRALGIA [None]
  - CONTUSION [None]
  - DISLOCATION OF JOINT PROSTHESIS [None]
  - FALL [None]
  - PAIN IN EXTREMITY [None]
